FAERS Safety Report 6711853-6 (Version None)
Quarter: 2010Q2

REPORT INFORMATION
  Report Type: 
  Country: None (occurrence: None)
  Receive Date: 20100505
  Receipt Date: 20100427
  Transmission Date: 20101027
  Serious: Yes (Other)
  Sender: FDA-Public Use
  Company Number: US-CEPHALON-2010002434

PATIENT
  Sex: Male

DRUGS (7)
  1. FENTORA [Suspect]
     Indication: PAIN
     Route: 002
     Dates: start: 20100201
  2. PROSOM [Concomitant]
     Indication: INSOMNIA
     Dates: start: 20000101
  3. ALPRAZOLAM [Concomitant]
     Indication: MUSCLE RELAXANT THERAPY
  4. OXYCONTIN [Concomitant]
     Indication: PAIN
  5. BUTALBITAL/ACETAMINOPHEN [Concomitant]
     Indication: HEADACHE
     Dates: start: 20000101
  6. MYCELEX [Concomitant]
     Indication: FUNGAL INFECTION
  7. PREDNISONE [Concomitant]
     Indication: RHEUMATOID ARTHRITIS
     Dates: start: 20090301

REACTIONS (4)
  - GINGIVAL BLEEDING [None]
  - GINGIVAL RECESSION [None]
  - INCORRECT ROUTE OF DRUG ADMINISTRATION [None]
  - SYSTEMIC LUPUS ERYTHEMATOSUS [None]
